FAERS Safety Report 20649584 (Version 1)
Quarter: 2022Q1

REPORT INFORMATION
  Report Type: Spontaneous
  Country: US (occurrence: None)
  Receive Date: 20220329
  Receipt Date: 20220329
  Transmission Date: 20220423
  Serious: Yes (Disabling)
  Sender: FDA-Public Use
  Company Number: None

PATIENT
  Age: 51 Year
  Sex: Female
  Weight: 65.25 kg

DRUGS (10)
  1. ESOMEPRAZOLE MAGENISIUM [Suspect]
     Active Substance: ESOMEPRAZOLE MAGNESIUM
     Indication: Gastric ulcer
     Dosage: OTHER QUANTITY : 30 CAPSULE(S);?FREQUENCY : DAILY;?
     Route: 048
     Dates: start: 20220210, end: 20220301
  2. TRELEGY ELLIPTA [Concomitant]
     Active Substance: FLUTICASONE FUROATE\UMECLIDINIUM BROMIDE\VILANTEROL TRIFENATATE
  3. PROAIR HFA [Concomitant]
     Active Substance: ALBUTEROL SULFATE
  4. ACCOLATE [Concomitant]
     Active Substance: ZAFIRLUKAST
  5. GABAPENTIN [Concomitant]
     Active Substance: GABAPENTIN
  6. VITAMINS [Concomitant]
     Active Substance: VITAMINS
  7. ESOMEPRAZOLE [Concomitant]
     Active Substance: ESOMEPRAZOLE
  8. MAGNESIUM [Concomitant]
     Active Substance: MAGNESIUM
  9. one  a day vitamin [Concomitant]
  10. tylenal [Concomitant]

REACTIONS (7)
  - Ulcer [None]
  - Condition aggravated [None]
  - Inflammation [None]
  - Product use complaint [None]
  - Product formulation issue [None]
  - Muscle spasms [None]
  - Product substitution issue [None]

NARRATIVE: CASE EVENT DATE: 20220301
